FAERS Safety Report 11201008 (Version 1)
Quarter: 2015Q2

REPORT INFORMATION
  Report Type: Other
  Country: IT (occurrence: IT)
  Receive Date: 20150618
  Receipt Date: 20150618
  Transmission Date: 20150821
  Serious: Yes (Other)
  Sender: FDA-Public Use
  Company Number: IT-MYLANLABS-2015M1019329

PATIENT

DRUGS (4)
  1. SEROQUEL [Suspect]
     Active Substance: QUETIAPINE FUMARATE
     Indication: PRODUCT USED FOR UNKNOWN INDICATION
     Dosage: UNK
  2. FLURAZEPAMI MONOHYDROCHLORIDUM [Concomitant]
     Indication: PRODUCT USED FOR UNKNOWN INDICATION
     Dosage: 30 MG, UNK
     Route: 048
  3. SEROQUEL [Suspect]
     Active Substance: QUETIAPINE FUMARATE
     Dosage: 200 MG, UNK
  4. LORAZEPAM. [Suspect]
     Active Substance: LORAZEPAM
     Indication: PRODUCT USED FOR UNKNOWN INDICATION
     Dosage: 60 GTT, QD
     Route: 048

REACTIONS (1)
  - Presyncope [Unknown]

NARRATIVE: CASE EVENT DATE: 20141215
